FAERS Safety Report 9973126 (Version 1)
Quarter: 2014Q1

REPORT INFORMATION
  Report Type: Spontaneous
  Country: FR (occurrence: FR)
  Receive Date: 20140306
  Receipt Date: 20140306
  Transmission Date: 20141002
  Serious: Yes (Hospitalization)
  Sender: FDA-Public Use
  Company Number: FR-JNJFOC-20140215236

PATIENT
  Age: 67 Year
  Sex: Male

DRUGS (3)
  1. HALDOL [Suspect]
     Indication: PSYCHOTIC DISORDER
     Route: 048
  2. LARGACTIL [Suspect]
     Indication: PRODUCT USED FOR UNKNOWN INDICATION
     Route: 048
  3. LEPTICUR [Concomitant]
     Indication: TREMOR
     Route: 065
     Dates: start: 201208

REACTIONS (2)
  - Bone marrow failure [Not Recovered/Not Resolved]
  - Dyskinesia [Not Recovered/Not Resolved]
